FAERS Safety Report 20785094 (Version 1)
Quarter: 2022Q2

REPORT INFORMATION
  Report Type: Spontaneous
  Country: US (occurrence: None)
  Receive Date: 20220503
  Receipt Date: 20220503
  Transmission Date: 20220721
  Serious: Yes (Hospitalization)
  Sender: FDA-Public Use
  Company Number: None

PATIENT
  Age: 45 Year
  Sex: Female

DRUGS (1)
  1. AMBRISENTAN [Suspect]
     Active Substance: AMBRISENTAN
     Indication: Pulmonary arterial hypertension
     Dosage: FREQUENCY : DAILY;?
     Route: 048
     Dates: start: 20210712

REACTIONS (6)
  - Chest pain [None]
  - COVID-19 [None]
  - Dyspnoea [None]
  - Vomiting [None]
  - Oedema peripheral [None]
  - Troponin increased [None]

NARRATIVE: CASE EVENT DATE: 20220430
